FAERS Safety Report 9071003 (Version 1)
Quarter: 2013Q1

REPORT INFORMATION
  Report Type: Spontaneous
  Country: US (occurrence: US)
  Receive Date: 20130206
  Receipt Date: 20130206
  Transmission Date: 20140127
  Serious: No
  Sender: FDA-Public Use
  Company Number: US-ALLERGAN-1207452US

PATIENT
  Sex: Female

DRUGS (4)
  1. RESTASIS? [Suspect]
     Indication: MEIBOMIAN GLAND DYSFUNCTION
     Dosage: 2 GTT, BID
     Route: 047
     Dates: start: 201202, end: 201204
  2. RESTASIS? [Suspect]
     Dosage: 2 GTT, QAM
     Route: 047
     Dates: start: 201204
  3. KLONOPIN [Concomitant]
     Indication: ANXIETY
     Dosage: UNK
     Route: 048
     Dates: start: 2011
  4. KLONOPIN [Concomitant]
     Indication: INSOMNIA

REACTIONS (4)
  - Dyspnoea [Not Recovered/Not Resolved]
  - Dysphagia [Not Recovered/Not Resolved]
  - Pharyngeal hypoaesthesia [Not Recovered/Not Resolved]
  - Inappropriate schedule of drug administration [Not Recovered/Not Resolved]
